FAERS Safety Report 13511014 (Version 1)
Quarter: 2017Q2

REPORT INFORMATION
  Report Type: Spontaneous
  Country: US (occurrence: US)
  Receive Date: 20170503
  Receipt Date: 20170503
  Transmission Date: 20170830
  Serious: Yes (Other)
  Sender: FDA-Public Use
  Company Number: US-SUNOVION-2017SUN001877

PATIENT
  Age: 32 Year
  Sex: Male

DRUGS (1)
  1. APTIOM [Suspect]
     Active Substance: ESLICARBAZEPINE ACETATE
     Indication: SEIZURE
     Dosage: UNK
     Route: 048

REACTIONS (3)
  - Suicidal ideation [Not Recovered/Not Resolved]
  - Seizure [Not Recovered/Not Resolved]
  - Depression [Not Recovered/Not Resolved]
